FAERS Safety Report 17865559 (Version 1)
Quarter: 2020Q2

REPORT INFORMATION
  Report Type: Spontaneous
  Country: US (occurrence: US)
  Receive Date: 20200604
  Receipt Date: 20200604
  Transmission Date: 20200714
  Serious: No
  Sender: FDA-Public Use
  Company Number: None

PATIENT
  Sex: Male

DRUGS (1)
  1. NINLARO [Suspect]
     Active Substance: IXAZOMIB CITRATE
     Indication: PLASMA CELL MYELOMA
     Dosage: 1 CAPSULE BY MOUTH ON DAYS 1, 8, 15 OF A 28 DAY CYCLE
     Route: 048
     Dates: start: 20200107

REACTIONS (1)
  - Therapy cessation [None]
